FAERS Safety Report 8104420-3 (Version None)
Quarter: 2012Q1

REPORT INFORMATION
  Report Type: 
  Country: None (occurrence: None)
  Receive Date: 20120130
  Receipt Date: 20120119
  Transmission Date: 20120608
  Serious: Yes (Other)
  Sender: FDA-Public Use
  Company Number: HU-JNJFOC-20120108233

PATIENT
  Sex: Female

DRUGS (4)
  1. XARELTO [Suspect]
     Route: 048
  2. XARELTO [Suspect]
     Route: 048
  3. XARELTO [Suspect]
     Indication: THROMBOSIS PROPHYLAXIS
     Route: 048
  4. XARELTO [Suspect]
     Indication: ORTHOPEDIC PROCEDURE
     Route: 048

REACTIONS (1)
  - PULMONARY EMBOLISM [None]
